FAERS Safety Report 8584609-X (Version None)
Quarter: 2012Q3

REPORT INFORMATION
  Report Type: 
  Country: None (occurrence: None)
  Receive Date: 20120810
  Receipt Date: 20120731
  Transmission Date: 20120928
  Serious: Yes (Hospitalization)
  Sender: FDA-Public Use
  Company Number: US-BAYER-2012-045747

PATIENT
  Age: 16 Year
  Sex: Female

DRUGS (6)
  1. ANALGESICS [Concomitant]
  2. ATIVAN [Concomitant]
     Dosage: 0.5 MG, UNK
  3. EXTRA STRENGTH TYLENOL [Concomitant]
  4. YAZ [Suspect]
     Dosage: UNK
  5. YASMIN [Suspect]
     Dosage: UNK
  6. ASPIRIN [Concomitant]
     Dosage: UNK

REACTIONS (8)
  - INJURY [None]
  - FEAR [None]
  - ANHEDONIA [None]
  - QUALITY OF LIFE DECREASED [None]
  - PAIN [None]
  - PULMONARY EMBOLISM [None]
  - EMOTIONAL DISTRESS [None]
  - ANXIETY [None]
